FAERS Safety Report 4867315-4 (Version None)
Quarter: 2005Q4

REPORT INFORMATION
  Report Type: 
  Country: None (occurrence: None)
  Receive Date: 20051228
  Receipt Date: 20051219
  Transmission Date: 20060501
  Serious: Yes (Hospitalization)
  Sender: FDA-Public Use
  Company Number: AU-ROCHE-429036

PATIENT
  Age: 68 Year
  Sex: Female
  Weight: 60 kg

DRUGS (3)
  1. CEFTRIAXONE [Suspect]
     Route: 042
     Dates: start: 20030323, end: 20030325
  2. RULIDE [Concomitant]
  3. PHOLCODINE TAB [Concomitant]

REACTIONS (3)
  - INJECTION SITE REACTION [None]
  - PALLOR [None]
  - RASH MACULO-PAPULAR [None]
